FAERS Safety Report 9314268 (Version 2)
Quarter: 2013Q2

REPORT INFORMATION
  Report Type: Spontaneous
  Country: US (occurrence: US)
  Receive Date: 20130529
  Receipt Date: 20130531
  Transmission Date: 20140414
  Serious: Yes (Other)
  Sender: FDA-Public Use
  Company Number: PHEH2013US011618

PATIENT
  Sex: 0

DRUGS (1)
  1. RECLAST [Suspect]
     Dosage: UNK
     Route: 042

REACTIONS (4)
  - Erythromelalgia [Recovering/Resolving]
  - Erythema [Unknown]
  - Burning sensation [Unknown]
  - Insomnia [Unknown]
